FAERS Safety Report 21653968 (Version 1)
Quarter: 2022Q4

REPORT INFORMATION
  Report Type: Spontaneous
  Country: US (occurrence: US)
  Receive Date: 20221129
  Receipt Date: 20221129
  Transmission Date: 20230113
  Serious: No
  Sender: FDA-Public Use
  Company Number: US-ABBVIE-4175301

PATIENT
  Age: 48 Year
  Sex: Female

DRUGS (6)
  1. SYNTHROID [Suspect]
     Active Substance: LEVOTHYROXINE SODIUM
     Indication: Hypothyroidism
     Dosage: FORM STRENGTH:175 MICROGRAM
     Route: 048
  2. XANAX [Concomitant]
     Active Substance: ALPRAZOLAM
     Indication: Anxiety
  3. LEVOTHYROXINE [Suspect]
     Active Substance: LEVOTHYROXINE
     Indication: Hypothyroidism
     Dosage: FORM STRENGTH: 175 MICROGRAM
     Route: 048
     Dates: start: 20210811
  4. Pfizer [Concomitant]
     Indication: COVID-19 immunisation
     Dosage: FIRST DOSE.
     Route: 030
     Dates: start: 2021, end: 2021
  5. Pfizer [Concomitant]
     Indication: COVID-19 immunisation
     Dosage: SECOND DOSE.
     Route: 030
     Dates: start: 2021, end: 2021
  6. Pfizer [Concomitant]
     Indication: COVID-19 immunisation
     Dosage: THIRD DOSTHIRD DOSE.E.
     Route: 030
     Dates: start: 2021, end: 2021

REACTIONS (2)
  - Rash [Not Recovered/Not Resolved]
  - Rash [Recovered/Resolved]

NARRATIVE: CASE EVENT DATE: 20210811
